FAERS Safety Report 7507419-0 (Version None)
Quarter: 2011Q2

REPORT INFORMATION
  Report Type: 
  Country: None (occurrence: None)
  Receive Date: 20110526
  Receipt Date: 20110516
  Transmission Date: 20111010
  Serious: Yes (Hospitalization)
  Sender: FDA-Public Use
  Company Number: US-ELI_LILLY_AND_COMPANY-US201006005833

PATIENT
  Sex: Female

DRUGS (5)
  1. FORTEO [Suspect]
     Dosage: 20 UG, QD
  2. FORTEO [Suspect]
     Indication: OSTEOPOROSIS
     Dosage: 20 UG, DAILY (1/D)
     Dates: start: 20090909
  3. FORTEO [Suspect]
     Dosage: 20 UG, DAILY (1/D)
  4. VITAMIN D [Concomitant]
     Dosage: 2000 U, UNK
  5. CALCIUM CARBONATE [Concomitant]

REACTIONS (10)
  - PLEURISY [None]
  - ARTHRITIS [None]
  - CHEST PAIN [None]
  - MALAISE [None]
  - DRUG DOSE OMISSION [None]
  - BURSITIS [None]
  - FATIGUE [None]
  - INSOMNIA [None]
  - EAR DISCOMFORT [None]
  - INFLUENZA [None]
